FAERS Safety Report 20060250 (Version 1)
Quarter: 2021Q4

REPORT INFORMATION
  Report Type: Other
  Country: US (occurrence: None)
  Receive Date: 20211111
  Receipt Date: 20211111
  Transmission Date: 20220303
  Serious: Yes (Other)
  Sender: FDA-Public Use
  Company Number: US-ROCHE-2949594

PATIENT
  Sex: Female

DRUGS (1)
  1. XELODA [Suspect]
     Active Substance: CAPECITABINE
     Indication: Breast cancer metastatic
     Dosage: TAKE 3 TABLET(S) BY MOUTH TWICE A DAY 7 DAYS ON THEN 7 DAYS OFF, REPEAT
     Route: 048

REACTIONS (1)
  - Metastases to lung [Unknown]
